FAERS Safety Report 5717585-5 (Version None)
Quarter: 2008Q2

REPORT INFORMATION
  Report Type: 
  Country: None (occurrence: None)
  Receive Date: 20080425
  Receipt Date: 20080422
  Transmission Date: 20081010
  Serious: Yes (Disabling)
  Sender: FDA-Public Use
  Company Number: PHRM2008FR01354

PATIENT
  Age: 55 Year
  Sex: Female

DRUGS (6)
  1. ZOMETA [Suspect]
     Indication: OSTEOPOROSIS
     Dosage: 3 MG/YEAR
     Route: 042
     Dates: start: 20060906
  2. ZOMETA [Suspect]
     Dosage: 3 MG/YEAR
     Route: 042
     Dates: start: 20070906
  3. MABTHERA [Suspect]
     Indication: RHEUMATOID ARTHRITIS
     Route: 042
     Dates: start: 20061001
  4. MABTHERA [Suspect]
     Route: 042
     Dates: start: 20071001
  5. METHOTREXATE [Suspect]
     Indication: RHEUMATOID ARTHRITIS
     Dosage: 5 DF/WEEK
     Route: 048
  6. SOLU-MEDROL [Suspect]
     Indication: PREMEDICATION
     Dosage: 100 MG, ONCE/SINGLE
     Route: 042
     Dates: start: 20071001, end: 20071001

REACTIONS (11)
  - ALVEOLAR OSTEITIS [None]
  - BODY TEMPERATURE DECREASED [None]
  - HEADACHE [None]
  - OEDEMA MUCOSAL [None]
  - OSTEOLYSIS [None]
  - OSTEONECROSIS [None]
  - PAIN IN JAW [None]
  - PURULENT DISCHARGE [None]
  - PYREXIA [None]
  - RESORPTION BONE INCREASED [None]
  - SINUSITIS [None]
